FAERS Safety Report 25269113 (Version 3)
Quarter: 2025Q2

REPORT INFORMATION
  Report Type: Spontaneous
  Country: US (occurrence: US)
  Receive Date: 20250505
  Receipt Date: 20250530
  Transmission Date: 20250717
  Serious: Yes (Hospitalization, Disabling, Other)
  Sender: PFIZER
  Company Number: US-PFIZER INC-PV202500052414

PATIENT
  Age: 84 Year
  Sex: Male
  Weight: 107.48 kg

DRUGS (2)
  1. TALZENNA [Suspect]
     Active Substance: TALAZOPARIB TOSYLATE
     Indication: Prostate cancer
     Dosage: UNK, 1X/DAY (1/2 DOSE)
     Route: 048
     Dates: start: 202411
  2. XTANDI [Suspect]
     Active Substance: ENZALUTAMIDE
     Indication: Prostate cancer
     Dosage: 40 MG, 1X/DAY
     Route: 048
     Dates: start: 2021

REACTIONS (2)
  - Embolic stroke [Recovering/Resolving]
  - Atrial fibrillation [Recovering/Resolving]

NARRATIVE: CASE EVENT DATE: 20250421
